FAERS Safety Report 19632325 (Version 1)
Quarter: 2021Q3

REPORT INFORMATION
  Report Type: Spontaneous
  Country: US (occurrence: US)
  Receive Date: 20210728
  Receipt Date: 20210728
  Transmission Date: 20211014
  Serious: No
  Sender: FDA-Public Use
  Company Number: US-ROCHE-2604056

PATIENT

DRUGS (1)
  1. XELODA [Suspect]
     Active Substance: CAPECITABINE
     Indication: BREAST CANCER
     Route: 065

REACTIONS (6)
  - Abdominal distension [Unknown]
  - Fatigue [Unknown]
  - Dyspepsia [Unknown]
  - Gastric disorder [Unknown]
  - Constipation [Unknown]
  - Abdominal pain upper [Unknown]
